FAERS Safety Report 10383872 (Version 4)
Quarter: 2014Q3

REPORT INFORMATION
  Report Type: Spontaneous
  Country: JP (occurrence: JP)
  Receive Date: 20140814
  Receipt Date: 20140924
  Transmission Date: 20150326
  Serious: Yes (Other)
  Sender: FDA-Public Use
  Company Number: JP-JNJFOC-20140616143

PATIENT
  Age: 87 Year
  Sex: Female

DRUGS (12)
  1. GLORIAMIN [Concomitant]
     Route: 048
  2. WARFARIN POTASSIUM [Interacting]
     Active Substance: WARFARIN POTASSIUM
     Indication: ATRIAL FIBRILLATION
     Route: 048
     Dates: start: 20140520
  3. FLORID 2% [Suspect]
     Active Substance: MICONAZOLE
     Route: 049
  4. WARFARIN POTASSIUM [Interacting]
     Active Substance: WARFARIN POTASSIUM
     Indication: ATRIAL FIBRILLATION
     Route: 048
     Dates: start: 20140502, end: 20140514
  5. GLORIAMIN [Concomitant]
     Route: 048
  6. SENNOSIDE [Concomitant]
     Active Substance: SENNOSIDES
     Route: 048
  7. NITOROL R [Concomitant]
     Route: 048
  8. SIGMART [Concomitant]
     Active Substance: NICORANDIL
     Dosage: 1 DF
     Route: 048
  9. DAIOKANZOTO [Concomitant]
     Active Substance: LICORICE ROOT EXTRACT\RHUBARB
     Route: 048
  10. FLORID 2% [Suspect]
     Active Substance: MICONAZOLE
     Indication: ORAL CANDIDIASIS
     Route: 049
     Dates: start: 20140502, end: 20140509
  11. LANIRAPID [Concomitant]
     Active Substance: METILDIGOXIN
     Route: 048
  12. SIGMART [Concomitant]
     Active Substance: NICORANDIL
     Route: 048

REACTIONS (3)
  - Melaena [Recovered/Resolved]
  - Drug interaction [Recovered/Resolved]
  - Coagulopathy [Recovering/Resolving]

NARRATIVE: CASE EVENT DATE: 20140513
